FAERS Safety Report 25992340 (Version 4)
Quarter: 2025Q4

REPORT INFORMATION
  Report Type: Spontaneous
  Country: US (occurrence: US)
  Receive Date: 20251103
  Receipt Date: 20251202
  Transmission Date: 20260118
  Serious: Yes (Other)
  Sender: SANOFI AVENTIS
  Company Number: US-SA-2025SA320722

PATIENT
  Age: 65 Year
  Sex: Female
  Weight: 128 kg

DRUGS (1)
  1. DUPIXENT [Suspect]
     Active Substance: DUPILUMAB
     Indication: Asthma
     Dosage: 300 MG, BIM
     Route: 058

REACTIONS (7)
  - Pneumonia [Unknown]
  - Wheezing [Recovered/Resolved]
  - Scratch [Recovered/Resolved]
  - COVID-19 [Unknown]
  - Pruritus [Recovered/Resolved]
  - Asthma [Unknown]
  - Intentional dose omission [Unknown]
